FAERS Safety Report 9196420 (Version 1)
Quarter: 2013Q1

REPORT INFORMATION
  Report Type: Other
  Country: CN (occurrence: CN)
  Receive Date: 20130328
  Receipt Date: 20130328
  Transmission Date: 20140127
  Serious: Yes (Death)
  Sender: FDA-Public Use
  Company Number: CN-BRISTOL-MYERS SQUIBB COMPANY-18696278

PATIENT
  Age: 34 Year
  Sex: Male

DRUGS (2)
  1. TRIAMCINOLONE [Suspect]
     Indication: NEPHROTIC SYNDROME
  2. PREDNISOLONE [Suspect]
     Indication: NEPHROTIC SYNDROME

REACTIONS (1)
  - Disseminated cryptococcosis [Fatal]
